FAERS Safety Report 26174673 (Version 1)
Quarter: 2025Q4

REPORT INFORMATION
  Report Type: Spontaneous
  Country: US (occurrence: US)
  Receive Date: 20251218
  Receipt Date: 20251218
  Transmission Date: 20260117
  Serious: No
  Sender: MERCK SHARP & DOHME LLC
  Company Number: US-009507513-2361254

PATIENT
  Sex: Female
  Weight: 44 kg

DRUGS (15)
  1. WINREVAIR [Suspect]
     Active Substance: SOTATERCEPT-CSRK
  2. WINREVAIR [Suspect]
     Active Substance: SOTATERCEPT-CSRK
  3. WINREVAIR [Suspect]
     Active Substance: SOTATERCEPT-CSRK
  4. WINREVAIR [Suspect]
     Active Substance: SOTATERCEPT-CSRK
  5. TYVASO DPI [Suspect]
     Active Substance: TREPROSTINIL
     Indication: Pulmonary arterial hypertension
     Dosage: STRENGTH: 64 UG
     Route: 055
     Dates: start: 20250421
  6. LORAZEPAM [Concomitant]
     Active Substance: LORAZEPAM
  7. LASIX [Concomitant]
     Active Substance: FUROSEMIDE
  8. TADALAFIL [Concomitant]
     Active Substance: TADALAFIL
  9. LEXAPRO [Concomitant]
     Active Substance: ESCITALOPRAM OXALATE
  10. OXYGEN [Concomitant]
     Active Substance: OXYGEN
  11. REVATIO [Concomitant]
     Active Substance: SILDENAFIL CITRATE
  12. CELLCEPT [Concomitant]
     Active Substance: MYCOPHENOLATE MOFETIL
  13. REMERON [Concomitant]
     Active Substance: MIRTAZAPINE
  14. AMBIEN [Concomitant]
     Active Substance: ZOLPIDEM TARTRATE
  15. VITAMIN B COMPLEX WITH C [Concomitant]
     Active Substance: ASCORBIC ACID\CALCIUM PANTOTHENATE\CYANOCOBALAMIN\NIACINAMIDE\PYRIDOXINE HYDROCHLORIDE\RIBOFLAVIN\TH

REACTIONS (1)
  - Diarrhoea [Recovered/Resolved]

NARRATIVE: CASE EVENT DATE: 20250101
